FAERS Safety Report 6103127-1 (Version None)
Quarter: 2009Q1

REPORT INFORMATION
  Report Type: 
  Country: None (occurrence: None)
  Receive Date: 20090305
  Receipt Date: 20090224
  Transmission Date: 20090719
  Serious: Yes (Other)
  Sender: FDA-Public Use
  Company Number: US-BAYER-US-2006-029758

PATIENT
  Age: 48 Year
  Sex: Female
  Weight: 132 kg

DRUGS (15)
  1. BETASERON [Suspect]
     Indication: RELAPSING-REMITTING MULTIPLE SCLEROSIS
     Dosage: TOTAL DAILY DOSE: 8 MIU
     Route: 058
     Dates: start: 19970401
  2. STEROID [Concomitant]
     Dates: start: 20070101
  3. METHOTREXATE [Concomitant]
     Indication: RHEUMATOID ARTHRITIS
     Dosage: TOTAL DAILY DOSE: 8 DF
  4. FLOMAX [Concomitant]
  5. CYMBALTA [Concomitant]
     Dosage: TOTAL DAILY DOSE: 60 MG
  6. MOBIC [Concomitant]
     Dosage: TOTAL DAILY DOSE: 7.5 MG
  7. BACLOFEN [Concomitant]
     Dosage: TOTAL DAILY DOSE: 8 DF
  8. FOLIC ACID [Concomitant]
  9. PROTONIX [Concomitant]
     Dosage: TOTAL DAILY DOSE: 40 MG
  10. ZYRTEC [Concomitant]
     Dosage: TOTAL DAILY DOSE: 10 MG
  11. SINGULAIR [Concomitant]
     Dosage: TOTAL DAILY DOSE: 10 MG
  12. ZOMIG [Concomitant]
  13. FLONASE [Concomitant]
  14. FENTENOL [Concomitant]
     Indication: PAIN
  15. ADVAIR HFA [Concomitant]

REACTIONS (1)
  - CHOLECYSTECTOMY [None]
